FAERS Safety Report 24143299 (Version 7)
Quarter: 2024Q4

REPORT INFORMATION
  Report Type: Report from Study
  Country: US (occurrence: US)
  Receive Date: 20240726
  Receipt Date: 20241125
  Transmission Date: 20250114
  Serious: Yes (Other)
  Sender: PFIZER
  Company Number: US-PFIZER INC-202400194202

PATIENT
  Age: 61 Year
  Sex: Female

DRUGS (18)
  1. TUKYSA [Suspect]
     Active Substance: TUCATINIB
     Indication: Breast cancer metastatic
     Dosage: 50 MG, 2X/DAY
     Dates: start: 20240528
  2. TUKYSA [Suspect]
     Active Substance: TUCATINIB
     Dosage: 150 MG, 2X/DAY
  3. TUKYSA [Suspect]
     Active Substance: TUCATINIB
     Dosage: UNK
  4. TUKYSA [Suspect]
     Active Substance: TUCATINIB
     Dosage: 200 MG, TWICE A DAY
     Route: 048
     Dates: start: 20240528
  5. TUKYSA [Suspect]
     Active Substance: TUCATINIB
     Dosage: 150 MG 60CT, TAKE 1 TABLET TWICE DAILY
     Route: 048
  6. TUKYSA [Suspect]
     Active Substance: TUCATINIB
     Dosage: 50 MG, TAKE 2 TABLETS TWICE DAILY
     Route: 048
  7. TUKYSA [Suspect]
     Active Substance: TUCATINIB
     Dosage: 2 TIMES DAILY
     Route: 048
  8. HERCEPTIN [Concomitant]
     Active Substance: TRASTUZUMAB
     Indication: Breast cancer metastatic
     Dosage: 750 MG
     Route: 042
     Dates: start: 20240730
  9. HERCEPTIN [Concomitant]
     Active Substance: TRASTUZUMAB
     Dosage: 600 MG
     Route: 042
     Dates: start: 20240819
  10. HERCEPTIN [Concomitant]
     Active Substance: TRASTUZUMAB
     Dosage: 600 MG
     Route: 042
     Dates: start: 20240910
  11. XELODA [Concomitant]
     Active Substance: CAPECITABINE
     Indication: Breast cancer metastatic
     Dosage: UNK
     Dates: start: 2024
  12. XELODA [Concomitant]
     Active Substance: CAPECITABINE
     Dosage: 2 TIMES DAILY AFTER MEALS
     Route: 048
  13. XELODA [Concomitant]
     Active Substance: CAPECITABINE
     Dosage: 2 TIMES DAILY AFTER MEALS
     Route: 048
  14. KADCYLA [Concomitant]
     Active Substance: ADO-TRASTUZUMAB EMTANSINE
     Indication: Breast cancer metastatic
     Dosage: 360 MG, CYCLIC
     Route: 042
     Dates: start: 20240604
  15. KADCYLA [Concomitant]
     Active Substance: ADO-TRASTUZUMAB EMTANSINE
     Dosage: 360 MG, CYCLIC
     Route: 042
     Dates: start: 20240625
  16. KANJINTI [Concomitant]
     Active Substance: TRASTUZUMAB-ANNS
     Indication: Breast cancer metastatic
     Dosage: 750 MG, CYCLIC
     Route: 042
     Dates: start: 20240730
  17. KANJINTI [Concomitant]
     Active Substance: TRASTUZUMAB-ANNS
     Dosage: 600 MG, CYCLIC
     Route: 042
     Dates: start: 20240819
  18. KANJINTI [Concomitant]
     Active Substance: TRASTUZUMAB-ANNS
     Dosage: 600 MG, CYCLIC
     Route: 042
     Dates: start: 20240910

REACTIONS (22)
  - Type 2 diabetes mellitus [Unknown]
  - Hepatitis [Unknown]
  - Diarrhoea [Not Recovered/Not Resolved]
  - Hepatic enzyme increased [Recovered/Resolved]
  - Fatigue [Not Recovered/Not Resolved]
  - Feeding disorder [Unknown]
  - Weight decreased [Unknown]
  - Hypersensitivity [Unknown]
  - Hypertransaminasaemia [Unknown]
  - Blood bilirubin increased [Unknown]
  - Rash [Unknown]
  - Dyspepsia [Unknown]
  - Abdominal pain [Unknown]
  - Headache [Unknown]
  - Blood pressure systolic increased [Unknown]
  - Contusion [Unknown]
  - Blood alkaline phosphatase increased [Unknown]
  - Red cell distribution width increased [Unknown]
  - Lymphocyte count decreased [Unknown]
  - Platelet count decreased [Unknown]
  - Off label use [Unknown]
  - Product dose omission issue [Unknown]

NARRATIVE: CASE EVENT DATE: 20240101
